FAERS Safety Report 9348280 (Version 1)
Quarter: 2013Q2

REPORT INFORMATION
  Report Type: Spontaneous
  Country: CH (occurrence: CH)
  Receive Date: 20130614
  Receipt Date: 20130614
  Transmission Date: 20140414
  Serious: Yes (Other)
  Sender: FDA-Public Use
  Company Number: CH-BAYER-2013-072986

PATIENT
  Age: 33 Year
  Sex: Female

DRUGS (1)
  1. AVALOX [Suspect]
     Indication: PRODUCT USED FOR UNKNOWN INDICATION
     Dosage: UNK
     Route: 064
     Dates: start: 20120625, end: 20120701

REACTIONS (1)
  - Exposure during pregnancy [Recovered/Resolved]
